FAERS Safety Report 6810638-X (Version None)
Quarter: 2010Q2

REPORT INFORMATION
  Report Type: 
  Country: None (occurrence: None)
  Receive Date: 20100629
  Receipt Date: 20100629
  Transmission Date: 20101027
  Serious: Yes (Disabling, Other)
  Sender: FDA-Public Use
  Company Number: None

PATIENT
  Sex: Male
  Weight: 92.9874 kg

DRUGS (1)
  1. FLOMAX [Suspect]
     Indication: URINARY RETENTION
     Dosage: 0.4 MG 1 DAILY, PO
     Route: 048
     Dates: start: 20070101

REACTIONS (2)
  - FLOPPY IRIS SYNDROME [None]
  - PUPILLARY DISORDER [None]
